FAERS Safety Report 15298991 (Version 1)
Quarter: 2018Q3

REPORT INFORMATION
  Report Type: Report from Study
  Country: CA (occurrence: CA)
  Receive Date: 20180821
  Receipt Date: 20180821
  Transmission Date: 20181010
  Serious: No
  Sender: FDA-Public Use
  Company Number: CA-ROCHE-2172140

PATIENT
  Sex: Female

DRUGS (1)
  1. OCREVUS [Suspect]
     Active Substance: OCRELIZUMAB
     Indication: RELAPSING-REMITTING MULTIPLE SCLEROSIS
     Dosage: LIQUID 300 MG ON DAY 0 + DAY 14 THEN 600 MG EVERY 6 MONTHS
     Route: 042
     Dates: start: 20180206

REACTIONS (1)
  - Nasopharyngitis [Recovering/Resolving]
